FAERS Safety Report 7409656-2 (Version None)
Quarter: 2011Q2

REPORT INFORMATION
  Report Type: 
  Country: None (occurrence: None)
  Receive Date: 20110407
  Receipt Date: 20110407
  Transmission Date: 20111010
  Serious: No
  Sender: FDA-Public Use
  Company Number: None

PATIENT
  Age: 55 Year
  Sex: Male
  Weight: 96 kg

DRUGS (2)
  1. ACETAMINOPHEN W/ CODEINE [Suspect]
     Dosage: 1 TAB OTHER PO
     Route: 048
     Dates: end: 20080408
  2. ACETAMINOPHEN [Suspect]
     Dosage: 325 MG OTHER PO
     Route: 048
     Dates: end: 20080408

REACTIONS (4)
  - LIVER FUNCTION TEST ABNORMAL [None]
  - CONFUSIONAL STATE [None]
  - LETHARGY [None]
  - OVERDOSE [None]
